FAERS Safety Report 10841295 (Version 2)
Quarter: 2015Q1

REPORT INFORMATION
  Report Type: Spontaneous
  Country: ES (occurrence: ES)
  Receive Date: 20150220
  Receipt Date: 20150305
  Transmission Date: 20150721
  Serious: Yes (Hospitalization)
  Sender: FDA-Public Use
  Company Number: ES-AMGEN-ESPSP2015006875

PATIENT
  Age: 47 Year
  Sex: Female
  Weight: 76 kg

DRUGS (7)
  1. SALAGEN [Concomitant]
     Active Substance: PILOCARPINE HYDROCHLORIDE
     Indication: SJOGREN^S SYNDROME
     Dosage: MAXIMUM 1 DF 4 TIMES PER DAY (SHE USUALLY TAKES 2 AND NOT ALL DAYS DEPENDING ON THE EYE DRYNESS
  2. ENBREL [Suspect]
     Active Substance: ETANERCEPT
     Dosage: 50 MG, QWK
     Route: 058
  3. METOJECT [Concomitant]
     Active Substance: METHOTREXATE SODIUM
     Indication: RHEUMATOID ARTHRITIS
     Dosage: 1 INJECTION WEEKLY (ON TUESDAYS)
  4. PREDNISONE. [Concomitant]
     Active Substance: PREDNISONE
     Indication: RHEUMATOID ARTHRITIS
     Dosage: 2.5 MG, 1X/DAY
  5. ENBREL [Suspect]
     Active Substance: ETANERCEPT
     Indication: RHEUMATOID ARTHRITIS
     Dosage: 50 MG, WEEKLY
     Route: 058
     Dates: start: 20141026
  6. ANTALGIN                           /00256202/ [Concomitant]
     Indication: PAIN
     Dosage: 1 DF, 1X/DAY
  7. EUTIROX [Concomitant]
     Active Substance: LEVOTHYROXINE SODIUM
     Indication: HYPOTHYROIDISM
     Dosage: 150 MUG, 1X/DAY

REACTIONS (8)
  - Injection site pruritus [Recovered/Resolved]
  - Chemical peritonitis [Recovered/Resolved]
  - Injection site reaction [Recovered/Resolved]
  - Cholecystitis [Recovered/Resolved]
  - Injection site pain [Recovered/Resolved]
  - Injection site haemorrhage [Recovered/Resolved]
  - Injection site erythema [Recovered/Resolved]
  - Injection site rash [Recovered/Resolved]

NARRATIVE: CASE EVENT DATE: 20150125
